FAERS Safety Report 6692477-6 (Version None)
Quarter: 2010Q2

REPORT INFORMATION
  Report Type: 
  Country: None (occurrence: None)
  Receive Date: 20100422
  Receipt Date: 20100419
  Transmission Date: 20101027
  Serious: Yes (Other)
  Sender: FDA-Public Use
  Company Number: A0855690A

PATIENT
  Age: 67 Year
  Sex: Male

DRUGS (2)
  1. ADVAIR DISKUS 100/50 [Suspect]
     Indication: ASTHMA
     Dosage: 1PUFF TWICE PER DAY
     Route: 055
     Dates: start: 20040101
  2. FLU SHOT [Concomitant]

REACTIONS (4)
  - ASTHMA [None]
  - ILL-DEFINED DISORDER [None]
  - NASOPHARYNGITIS [None]
  - PRODUCT QUALITY ISSUE [None]
